FAERS Safety Report 10306501 (Version 2)
Quarter: 2014Q3

REPORT INFORMATION
  Report Type: Spontaneous
  Country: JP (occurrence: JP)
  Receive Date: 20140715
  Receipt Date: 20140715
  Transmission Date: 20150326
  Serious: Yes (Hospitalization, Other)
  Sender: FDA-Public Use
  Company Number: JP-BAYER-2014-087409

PATIENT
  Age: 77 Year
  Sex: Male
  Weight: 52 kg

DRUGS (11)
  1. MIYA-BM [Concomitant]
     Active Substance: CLOSTRIDIUM BUTYRICUM SPORES STRAIN M-55
     Dosage: DAILY DOSE 3 DF
     Route: 048
  2. XARELTO [Suspect]
     Active Substance: RIVAROXABAN
     Indication: ATRIAL FIBRILLATION
     Dosage: 10 MG, DAILY DOSE
     Route: 048
     Dates: start: 20140423, end: 20140503
  3. CRAVIT [Concomitant]
     Active Substance: LEVOFLOXACIN
     Indication: ENTERITIS INFECTIOUS
     Dosage: 250 MG, OM
     Route: 048
     Dates: start: 20140423, end: 20140428
  4. DIART [Concomitant]
     Active Substance: AZOSEMIDE
     Dosage: 30 MG, OM
     Route: 048
     Dates: start: 20140307
  5. TRAZENTA [Concomitant]
     Active Substance: LINAGLIPTIN
     Dosage: 5 MG, OM
     Route: 048
     Dates: start: 20140307
  6. FEBUXOSTAT. [Concomitant]
     Active Substance: FEBUXOSTAT
     Dosage: 20 MG, OM
     Route: 048
     Dates: start: 20140306
  7. ANCARON [Suspect]
     Active Substance: AMIODARONE HYDROCHLORIDE
     Dosage: 50 MG, OM
     Route: 048
     Dates: start: 20140306, end: 20140503
  8. LANSOPRAZOLE. [Concomitant]
     Active Substance: LANSOPRAZOLE
     Dosage: 15 MG, OM
     Route: 048
     Dates: start: 20140307
  9. MAGMITT [Concomitant]
     Active Substance: MAGNESIUM OXIDE
     Dosage: 660 MG DAILY DOSE
     Route: 048
     Dates: start: 20140306
  10. BAYASPIRIN [Interacting]
     Active Substance: ASPIRIN
     Dosage: 100 MG, OM
     Route: 048
     Dates: start: 20140306, end: 20140503
  11. XARELTO [Interacting]
     Active Substance: RIVAROXABAN
     Indication: CEREBROVASCULAR ACCIDENT PROPHYLAXIS

REACTIONS (5)
  - Cardiac failure [Recovered/Resolved]
  - Pulmonary alveolar haemorrhage [Recovered/Resolved]
  - Pulmonary congestion [Recovered/Resolved]
  - Haemoptysis [Recovered/Resolved]
  - Drug interaction [None]

NARRATIVE: CASE EVENT DATE: 20140503
